FAERS Safety Report 7338384-7 (Version None)
Quarter: 2011Q1

REPORT INFORMATION
  Report Type: 
  Country: None (occurrence: None)
  Receive Date: 20110224
  Receipt Date: 20110209
  Transmission Date: 20110831
  Serious: Yes (Death, Other)
  Sender: FDA-Public Use
  Company Number: ADE2008-0123

PATIENT
  Age: 52 Year
  Sex: Male
  Weight: 90 kg

DRUGS (3)
  1. ASPIRIN [Concomitant]
  2. METFORMIN [Concomitant]
  3. SIMVASTATIN [Suspect]
     Indication: BLOOD CHOLESTEROL INCREASED
     Dates: start: 20070401

REACTIONS (10)
  - NIGHTMARE [None]
  - MENTAL DISORDER [None]
  - EXCORIATION [None]
  - SPINAL CORD OPERATION [None]
  - CONTUSION [None]
  - TOXICITY TO VARIOUS AGENTS [None]
  - ABNORMAL DREAMS [None]
  - MULTIPLE INJURIES [None]
  - RIB FRACTURE [None]
  - COMPLETED SUICIDE [None]
